FAERS Safety Report 16881854 (Version 2)
Quarter: 2019Q4

REPORT INFORMATION
  Report Type: Spontaneous
  Country: US (occurrence: US)
  Receive Date: 20191003
  Receipt Date: 20191122
  Transmission Date: 20200122
  Serious: Yes (Other)
  Sender: FDA-Public Use
  Company Number: US-BAYER-2019-174515

PATIENT
  Age: 47 Year
  Sex: Female
  Weight: 59 kg

DRUGS (3)
  1. LEVOTHYROXINE. [Concomitant]
     Active Substance: LEVOTHYROXINE
     Dosage: UNK
  2. ALKA-SELTZER PLUS NIGHT COLD AND FLU FORMULA [Suspect]
     Active Substance: ACETAMINOPHEN\DEXTROMETHORPHAN HYDROBROMIDE\DOXYLAMINE SUCCINATE\PHENYLEPHRINE
     Indication: NASOPHARYNGITIS
  3. ALKA-SELTZER PLUS NIGHT COLD AND FLU FORMULA [Suspect]
     Active Substance: ACETAMINOPHEN\DEXTROMETHORPHAN HYDROBROMIDE\DOXYLAMINE SUCCINATE\PHENYLEPHRINE
     Indication: HYPERSENSITIVITY
     Dosage: 2 AT ONCE THEN ONE AFTER THE OTHER
     Route: 048
     Dates: start: 20190922, end: 20190924

REACTIONS (4)
  - Product shape issue [None]
  - Self-induced vomiting [Unknown]
  - Incorrect dose administered [Unknown]
  - Choking [Unknown]

NARRATIVE: CASE EVENT DATE: 20190922
